FAERS Safety Report 5900465-X (Version None)
Quarter: 2008Q3

REPORT INFORMATION
  Report Type: 
  Country: None (occurrence: None)
  Receive Date: 20080926
  Receipt Date: 20080918
  Transmission Date: 20090109
  Serious: Yes (Hospitalization)
  Sender: FDA-Public Use
  Company Number: JP-PFIZER INC-2008066535

PATIENT
  Sex: Male
  Weight: 66.9 kg

DRUGS (3)
  1. AZULFIDINE [Suspect]
     Indication: RHEUMATOID ARTHRITIS
     Dosage: DAILY DOSE:1GRAM-TEXT:DAILY
     Route: 048
     Dates: start: 20080212, end: 20080805
  2. LOXONIN [Concomitant]
     Route: 048
     Dates: start: 20080130
  3. MUCOSTA [Concomitant]
     Route: 048
     Dates: start: 20080130

REACTIONS (1)
  - INTERSTITIAL LUNG DISEASE [None]
